FAERS Safety Report 14987560 (Version 2)
Quarter: 2018Q2

REPORT INFORMATION
  Report Type: Spontaneous
  Country: CA (occurrence: CA)
  Receive Date: 20180608
  Receipt Date: 20180622
  Transmission Date: 20180711
  Serious: Yes (Other)
  Sender: FDA-Public Use
  Company Number: CA-APOTEX-2018AP015144

PATIENT
  Age: 71 Year
  Sex: Male

DRUGS (4)
  1. ASPIRIN                            /00002701/ [Concomitant]
     Active Substance: ASPIRIN
     Indication: ANTIPLATELET THERAPY
     Dosage: 80 MG, UNK
     Route: 065
  2. APO-FLUTICASONE [Suspect]
     Active Substance: FLUTICASONE PROPIONATE
     Indication: NASAL CONGESTION
     Dosage: 1 DROP EACH NOSTRIL AT NIGHT, UNK
     Route: 045
     Dates: start: 201711
  3. EFFIENT [Concomitant]
     Active Substance: PRASUGREL HYDROCHLORIDE
     Indication: ANTIPLATELET THERAPY
     Dosage: 10 MG, UNK
     Route: 065
  4. BISOPROLOL SANDOZ [Concomitant]
     Active Substance: BISOPROLOL
     Indication: ANTIPLATELET THERAPY
     Dosage: 2.5 MG, UNK
     Route: 065

REACTIONS (3)
  - Epistaxis [Recovered/Resolved]
  - Thrombosis [Recovered/Resolved]
  - Nasal dryness [Unknown]

NARRATIVE: CASE EVENT DATE: 20180528
